FAERS Safety Report 13076843 (Version 1)
Quarter: 2016Q4

REPORT INFORMATION
  Report Type: Spontaneous
  Country: US (occurrence: US)
  Receive Date: 20161230
  Receipt Date: 20161230
  Transmission Date: 20170207
  Serious: No
  Sender: FDA-Public Use
  Company Number: US-009507513-1612USA012386

PATIENT
  Age: 67 Year
  Sex: Female

DRUGS (2)
  1. DEXAMETHASONE. [Suspect]
     Active Substance: DEXAMETHASONE
     Indication: VOCAL CORD DISORDER
     Dosage: 0.1 ML OF A 10 MG/ML, WEEKLY, FIVE INJECTIONS
     Route: 058
  2. PREDNISONE. [Suspect]
     Active Substance: PREDNISONE
     Indication: VOCAL CORD DISORDER
     Dosage: UNK
     Route: 048

REACTIONS (1)
  - Vocal cord atrophy [Recovered/Resolved]
